FAERS Safety Report 8394933-1 (Version None)
Quarter: 2012Q2

REPORT INFORMATION
  Report Type: 
  Country: None (occurrence: None)
  Receive Date: 20120530
  Receipt Date: 20110913
  Transmission Date: 20120825
  Serious: No
  Sender: FDA-Public Use
  Company Number: US-GLAXOSMITHKLINE-A0945180A

PATIENT
  Age: 70 Year
  Sex: Female
  Weight: 49 kg

DRUGS (2)
  1. FLOLAN [Suspect]
     Indication: PULMONARY ARTERIAL HYPERTENSION
     Dosage: 60NGKM UNKNOWN
     Route: 065
     Dates: start: 20080908
  2. LETAIRIS [Suspect]
     Dosage: 10MG PER DAY
     Route: 048

REACTIONS (4)
  - FLUSHING [None]
  - ERYTHEMA [None]
  - RASH MACULAR [None]
  - HAIR TEXTURE ABNORMAL [None]
